FAERS Safety Report 5298503-3 (Version None)
Quarter: 2007Q2

REPORT INFORMATION
  Report Type: 
  Country: None (occurrence: None)
  Receive Date: 20070416
  Receipt Date: 20070411
  Transmission Date: 20071010
  Serious: Yes (Hospitalization)
  Sender: FDA-Public Use
  Company Number: US-ALLERGAN-0703301US

PATIENT
  Age: 45 Year
  Sex: Female

DRUGS (1)
  1. LUMIGAN VS TRAVATAN [Suspect]
     Indication: GLAUCOMA
     Route: 047

REACTIONS (2)
  - DYSPNOEA [None]
  - STAPHYLOCOCCAL INFECTION [None]
